FAERS Safety Report 4311369-0 (Version None)
Quarter: 2004Q1

REPORT INFORMATION
  Report Type: 
  Country: None (occurrence: None)
  Receive Date: 20040302
  Receipt Date: 20040212
  Transmission Date: 20041129
  Serious: Yes (Disabling)
  Sender: FDA-Public Use
  Company Number: 204318

PATIENT
  Age: 54 Year
  Sex: Male
  Weight: 82.7 kg

DRUGS (8)
  1. XOLAIR [Suspect]
     Indication: ASTHMA
     Dosage: 300 MG, Q4W, SUBCUTANEOUS
     Route: 058
     Dates: start: 20031113
  2. PREVACID [Suspect]
  3. ALBUTEROL (ALBUTEROL SULFATE) [Concomitant]
  4. FLOVENT [Concomitant]
  5. SEREVENT [Concomitant]
  6. COMBIVENT (IPRATROPIUM BROMIDE, ALBUTEROL, ALBUTEROL SULFATE) [Concomitant]
  7. SINGULAIR [Concomitant]
  8. NASONEX (MOMETYASONE FUROATE) [Concomitant]

REACTIONS (7)
  - ASTHMA [None]
  - CONDITION AGGRAVATED [None]
  - HEADACHE [None]
  - IMPAIRED WORK ABILITY [None]
  - NAUSEA [None]
  - REACTION TO DRUG EXCIPIENT [None]
  - VOMITING [None]
